FAERS Safety Report 6599229-6 (Version None)
Quarter: 2010Q1

REPORT INFORMATION
  Report Type: 
  Country: None (occurrence: None)
  Receive Date: 20100224
  Receipt Date: 20100215
  Transmission Date: 20100710
  Serious: Yes (Other)
  Sender: FDA-Public Use
  Company Number: PHEH2006US02522

PATIENT
  Sex: Female

DRUGS (6)
  1. AREDIA [Suspect]
  2. ZOMETA [Suspect]
  3. BISPHOSPHONATES [Concomitant]
     Dates: end: 20050901
  4. XANAX [Concomitant]
     Indication: ANXIETY
  5. ATIVAN [Concomitant]
  6. LORTAB [Concomitant]

REACTIONS (14)
  - ANXIETY [None]
  - BONE DISORDER [None]
  - COUGH [None]
  - EMOTIONAL DISTRESS [None]
  - EXOSTOSIS [None]
  - IMPAIRED HEALING [None]
  - INJURY [None]
  - OEDEMA MOUTH [None]
  - OSTEOMYELITIS [None]
  - OSTEONECROSIS [None]
  - PAIN IN JAW [None]
  - SWELLING [None]
  - TOOTH EXTRACTION [None]
  - TRISMUS [None]
